FAERS Safety Report 7023553-6 (Version None)
Quarter: 2010Q3

REPORT INFORMATION
  Report Type: 
  Country: None (occurrence: None)
  Receive Date: 20100930
  Receipt Date: 20100930
  Transmission Date: 20110219
  Serious: Yes (Other)
  Sender: FDA-Public Use
  Company Number: None

PATIENT
  Age: 18 Year
  Sex: Female
  Weight: 52.6173 kg

DRUGS (2)
  1. LEVAQUIN [Suspect]
     Indication: PNEUMONIA
     Dosage: IV;  750MG 5 DAYS PO
     Route: 042
     Dates: start: 20100903, end: 20100903
  2. LEVAQUIN [Suspect]
     Indication: PNEUMONIA
     Dosage: IV;  750MG 5 DAYS PO
     Route: 042
     Dates: start: 20100904, end: 20100908

REACTIONS (11)
  - ASTHENIA [None]
  - COUGH [None]
  - ERYTHEMA [None]
  - FATIGUE [None]
  - NAUSEA [None]
  - OEDEMA PERIPHERAL [None]
  - PAIN IN EXTREMITY [None]
  - PRURITUS [None]
  - PYREXIA [None]
  - SERUM SICKNESS [None]
  - VOMITING [None]
